FAERS Safety Report 6116927-9 (Version None)
Quarter: 2009Q1

REPORT INFORMATION
  Report Type: 
  Country: None (occurrence: None)
  Receive Date: 20090314
  Receipt Date: 20081231
  Transmission Date: 20090719
  Serious: No
  Sender: FDA-Public Use
  Company Number: US-ABBOTT-09P-163-0495476-00

PATIENT
  Sex: Female
  Weight: 50.848 kg

DRUGS (4)
  1. HUMIRA [Suspect]
     Indication: RHEUMATOID ARTHRITIS
     Dates: start: 20030101, end: 20080930
  2. HUMIRA [Suspect]
     Dates: start: 20081231
  3. HYDROCODONE BITARTRATE [Concomitant]
     Indication: PAIN
  4. PREDNISONE [Concomitant]
     Indication: DRUG USE FOR UNKNOWN INDICATION
     Dosage: 4 DAILY 4 DAYS, 3 DAILY 3 DAY, 2 DAILY 2 DAYS
     Dates: start: 20081231

REACTIONS (3)
  - OCCULT BLOOD POSITIVE [None]
  - RASH [None]
  - URTICARIA [None]
